FAERS Safety Report 8935568 (Version 1)
Quarter: 2012Q4

REPORT INFORMATION
  Report Type: 
  Country: US (occurrence: US)
  Receive Date: 20121130
  Receipt Date: 20121130
  Transmission Date: 20130627
  Serious: Yes (Hospitalization)
  Sender: FDA-Public Use
  Company Number: US-NOVOPROD-365134

PATIENT
  Sex: Male

DRUGS (1)
  1. NOVOLIN 70/30 [Suspect]
     Dosage: UNK
     Route: 058

REACTIONS (3)
  - Hospitalisation [Unknown]
  - Product colour issue [Unknown]
  - Blood glucose increased [Unknown]
